FAERS Safety Report 12551931 (Version 3)
Quarter: 2016Q3

REPORT INFORMATION
  Report Type: Spontaneous
  Country: US (occurrence: US)
  Receive Date: 20160713
  Receipt Date: 20160808
  Transmission Date: 20161109
  Serious: No
  Sender: FDA-Public Use
  Company Number: US-BEH-2015056271

PATIENT
  Sex: Female
  Weight: 72 kg

DRUGS (23)
  1. CLARITHROMYCIN. [Concomitant]
     Active Substance: CLARITHROMYCIN
  2. ADVAIR DISKUS [Concomitant]
     Active Substance: FLUTICASONE PROPIONATE\SALMETEROL XINAFOATE
     Dosage: 250-50 MCG BLST W/DEV
  3. SOMA [Concomitant]
     Active Substance: CARISOPRODOL
  4. EPI-PEN AUTOINJECTOR [Concomitant]
  5. SALONPAS PAIN RELIEF [Concomitant]
     Active Substance: MENTHOL\METHYL SALICYLATE
     Dosage: 10%-3 % ADH.PATCH
  6. SINGULAIR [Concomitant]
     Active Substance: MONTELUKAST SODIUM
  7. SYNTHROID [Concomitant]
     Active Substance: LEVOTHYROXINE SODIUM
  8. GLUCOPHAGE [Concomitant]
     Active Substance: METFORMIN HYDROCHLORIDE
  9. FIORINAL [Concomitant]
     Active Substance: ASPIRIN\BUTALBITAL\CAFFEINE
     Dosage: 50-325-40
  10. NEURONTIN [Concomitant]
     Active Substance: GABAPENTIN
  11. HIZENTRA [Suspect]
     Active Substance: HUMAN IMMUNOGLOBULIN G
     Indication: IMMUNODEFICIENCY COMMON VARIABLE
     Route: 058
     Dates: start: 20150427
  12. ATROVENT [Concomitant]
     Active Substance: IPRATROPIUM BROMIDE
     Dosage: SPRAY
  13. LIDOCAINE 4% [Concomitant]
     Active Substance: LIDOCAINE
  14. ZANTAC [Concomitant]
     Active Substance: RANITIDINE HYDROCHLORIDE
  15. HYDROCHLOROTHIAZIDE. [Concomitant]
     Active Substance: HYDROCHLOROTHIAZIDE
  16. QNASL [Concomitant]
     Active Substance: BECLOMETHASONE DIPROPIONATE
     Dosage: AS DIRECTED
  17. PROTONIX [Concomitant]
     Active Substance: PANTOPRAZOLE SODIUM
  18. ACETAMINOPHEN. [Concomitant]
     Active Substance: ACETAMINOPHEN
  19. MOTRIN IB [Concomitant]
     Active Substance: IBUPROFEN
  20. ALDACTONE [Concomitant]
     Active Substance: SPIRONOLACTONE
  21. DILTIAZEM ER [Concomitant]
     Active Substance: DILTIAZEM
  22. DIPHENHYDRAMINE. [Concomitant]
     Active Substance: DIPHENHYDRAMINE
  23. DRISDOL [Concomitant]
     Active Substance: ERGOCALCIFEROL

REACTIONS (3)
  - Infusion site extravasation [Unknown]
  - Fascial rupture [Unknown]
  - Infusion site haemorrhage [Unknown]
